FAERS Safety Report 19723878 (Version 1)
Quarter: 2021Q3

REPORT INFORMATION
  Report Type: Spontaneous
  Country: GB (occurrence: GB)
  Receive Date: 20210819
  Receipt Date: 20210819
  Transmission Date: 20211014
  Serious: No
  Sender: FDA-Public Use
  Company Number: GB-LUPIN PHARMACEUTICALS INC.-2021-15048

PATIENT
  Age: 39 Year
  Sex: Female

DRUGS (4)
  1. BICARBONATE [Suspect]
     Active Substance: SODIUM BICARBONATE
     Indication: STARVATION KETOACIDOSIS
     Dosage: UNK
     Route: 042
  2. BICARBONATE [Suspect]
     Active Substance: SODIUM BICARBONATE
     Dosage: UNK
     Route: 048
  3. POTASSIUM [Suspect]
     Active Substance: POTASSIUM
     Indication: STARVATION KETOACIDOSIS
     Dosage: UNK
     Route: 065
  4. GLUCOSE [Suspect]
     Active Substance: DEXTROSE
     Indication: STARVATION KETOACIDOSIS
     Dosage: UNK
     Route: 065

REACTIONS (1)
  - Exposure during pregnancy [Unknown]
